FAERS Safety Report 7276050-7 (Version None)
Quarter: 2011Q1

REPORT INFORMATION
  Report Type: 
  Country: None (occurrence: None)
  Receive Date: 20110204
  Receipt Date: 20110128
  Transmission Date: 20110831
  Serious: Yes (Hospitalization)
  Sender: FDA-Public Use
  Company Number: B0697994A

PATIENT
  Sex: Female

DRUGS (1)
  1. CLAMOXYL [Suspect]
     Indication: OTITIS MEDIA ACUTE
     Route: 048
     Dates: start: 20100901

REACTIONS (4)
  - RASH ERYTHEMATOUS [None]
  - RASH MACULO-PAPULAR [None]
  - OEDEMA PERIPHERAL [None]
  - URTICARIA [None]
